FAERS Safety Report 19777143 (Version 1)
Quarter: 2021Q3

REPORT INFORMATION
  Report Type: Report from Study
  Country: CA (occurrence: CA)
  Receive Date: 20210901
  Receipt Date: 20210901
  Transmission Date: 20211014
  Serious: Yes (Other)
  Sender: FDA-Public Use
  Company Number: NVSC2021CA191295

PATIENT
  Age: 22 Year
  Sex: Female

DRUGS (7)
  1. AMOXI?CLAV [Suspect]
     Active Substance: AMOXICILLIN\CLAVULANATE POTASSIUM
     Indication: ABSCESS
     Dosage: UNK, TID
     Route: 048
  2. DYMISTA [Concomitant]
     Active Substance: AZELASTINE HYDROCHLORIDE\FLUTICASONE PROPIONATE
     Indication: PRODUCT USED FOR UNKNOWN INDICATION
     Dosage: 1 DF, QD
     Route: 045
  3. MONTELUKAST SODIUM. [Suspect]
     Active Substance: MONTELUKAST SODIUM
     Indication: ASTHMA
     Dosage: 10 MG, QD
     Route: 048
  4. ZENHALE [Concomitant]
     Active Substance: FORMOTEROL FUMARATE\MOMETASONE FUROATE
     Indication: PRODUCT USED FOR UNKNOWN INDICATION
     Dosage: 1 DF, BID
     Route: 055
  5. SINGULAIR [Concomitant]
     Active Substance: MONTELUKAST SODIUM
     Indication: PRODUCT USED FOR UNKNOWN INDICATION
     Route: 065
  6. RUP AL [Concomitant]
     Active Substance: RUPATADINE FUMARATE
     Indication: PRODUCT USED FOR UNKNOWN INDICATION
     Route: 065
  7. SPIRIVA [Concomitant]
     Active Substance: TIOTROPIUM BROMIDE MONOHYDRATE
     Indication: PRODUCT USED FOR UNKNOWN INDICATION
     Dosage: 2 DF, QD
     Route: 055

REACTIONS (23)
  - Asthma [Unknown]
  - Conjunctivitis allergic [Unknown]
  - Blood immunoglobulin E increased [Unknown]
  - Respiratory tract infection [Unknown]
  - Nasal congestion [Unknown]
  - Hypersensitivity [Unknown]
  - Cough [Unknown]
  - Presyncope [Unknown]
  - Wheezing [Unknown]
  - Iron deficiency anaemia [Unknown]
  - Chest discomfort [Unknown]
  - Nasal obstruction [Unknown]
  - Rhinitis [Unknown]
  - Pelvic abscess [Unknown]
  - Irritability [Unknown]
  - Dyspnoea [Unknown]
  - Eye pruritus [Unknown]
  - Body mass index increased [Unknown]
  - Coeliac disease [Unknown]
  - Allergy to animal [Unknown]
  - Eye disorder [Unknown]
  - Dizziness [Unknown]
  - Eosinophil count increased [Unknown]

NARRATIVE: CASE EVENT DATE: 20200128
